FAERS Safety Report 6556875-3 (Version None)
Quarter: 2010Q1

REPORT INFORMATION
  Report Type: 
  Country: None (occurrence: None)
  Receive Date: 20100128
  Receipt Date: 20100125
  Transmission Date: 20100710
  Serious: Yes (Death, Hospitalization)
  Sender: FDA-Public Use
  Company Number: PHHY2010MX03966

PATIENT
  Sex: Male

DRUGS (3)
  1. DIOVAN HCT [Suspect]
     Indication: HYPERTENSION
     Dosage: 160/12.5 MG, 2 TABLETS PER DAY
     Route: 048
     Dates: start: 20080701
  2. NORVASC [Concomitant]
     Dosage: 2 TABLETS PER DAY
     Route: 065
     Dates: start: 20080701
  3. GALVUS MET [Concomitant]
     Indication: DIABETES MELLITUS
     Dosage: 2 TABLETS PER DAY
     Route: 065
     Dates: start: 20090101

REACTIONS (5)
  - HEADACHE [None]
  - HYPERTENSION [None]
  - MYOCARDIAL INFARCTION [None]
  - NAUSEA [None]
  - VOMITING [None]
